FAERS Safety Report 6639099-0 (Version None)
Quarter: 2010Q1

REPORT INFORMATION
  Report Type: 
  Country: None (occurrence: None)
  Receive Date: 20100312
  Receipt Date: 20100223
  Transmission Date: 20100710
  Serious: Yes (Hospitalization)
  Sender: FDA-Public Use
  Company Number: B0637847A

PATIENT
  Age: 49 Year
  Sex: Male

DRUGS (3)
  1. ROSIGLITAZONE [Suspect]
     Indication: DRUG USE FOR UNKNOWN INDICATION
  2. METFORMIN HYDROCHLORIDE [Concomitant]
  3. GLICLAZIDE [Concomitant]

REACTIONS (6)
  - BLOOD PH INCREASED [None]
  - HEART RATE INCREASED [None]
  - LEFT VENTRICULAR FAILURE [None]
  - PO2 DECREASED [None]
  - PULMONARY OEDEMA [None]
  - RESPIRATORY RATE INCREASED [None]
